FAERS Safety Report 9235570 (Version 1)
Quarter: 2013Q2

REPORT INFORMATION
  Report Type: Spontaneous
  Country: BR (occurrence: BR)
  Receive Date: 20130417
  Receipt Date: 20130417
  Transmission Date: 20140414
  Serious: Yes (Other)
  Sender: FDA-Public Use
  Company Number: BR-JNJFOC-20130405219

PATIENT
  Age: 93 Year
  Sex: Female

DRUGS (1)
  1. XARELTO [Suspect]
     Indication: PRODUCT USED FOR UNKNOWN INDICATION
     Route: 048

REACTIONS (3)
  - Pulmonary embolism [Unknown]
  - Deep vein thrombosis [Unknown]
  - Drug ineffective [Unknown]
